FAERS Safety Report 16364069 (Version 1)
Quarter: 2019Q2

REPORT INFORMATION
  Report Type: Spontaneous
  Country: CH (occurrence: CH)
  Receive Date: 20190528
  Receipt Date: 20190528
  Transmission Date: 20190711
  Serious: Yes (Hospitalization)
  Sender: FDA-Public Use
  Company Number: CH-PFIZER INC-2019219738

PATIENT
  Age: 67 Year
  Sex: Male

DRUGS (15)
  1. MICROLAX [SODIUM CITRATE;SODIUM LAURYL SULFOACETATE;SORBITOL] [Concomitant]
     Active Substance: SODIUM CITRATE\SODIUM LAURYL SULFOACETATE\SORBITOL
     Dosage: UNK
  2. DIPIPERON [Suspect]
     Active Substance: PIPAMPERONE
     Dosage: 40 MG, 1X/DAY
     Dates: end: 20190413
  3. NEXIUM [Concomitant]
     Active Substance: ESOMEPRAZOLE MAGNESIUM
     Dosage: UNK
  4. LECICARBON [SODIUM CARBONATE ANHYDROUS;SODIUM PHOSPHATE MONOBASIC (ANH [Concomitant]
     Dosage: UNK
  5. IPRAMOL [Concomitant]
     Active Substance: ALBUTEROL SULFATE\IPRATROPIUM BROMIDE
     Dosage: AS NECESSARY, IN RESERVE
  6. LIORESAL [Concomitant]
     Active Substance: BACLOFEN
     Dosage: 230 UG, 1X/DAY
     Route: 037
  7. BACLOFEN SINTETICA [Suspect]
     Active Substance: BACLOFEN
     Dosage: 848 UG, 1X/DAY
     Route: 037
     Dates: start: 20190412, end: 20190415
  8. MOVICOL [Concomitant]
     Active Substance: POLYETHYLENE GLYCOL 3350\POTASSIUM CHLORIDE\SODIUM BICARBONATE\SODIUM CHLORIDE
     Dosage: UNK
  9. LIORESAL [Concomitant]
     Active Substance: BACLOFEN
     Dosage: 212 UG, 1X/DAY
     Route: 037
     Dates: end: 20190412
  10. FOLIC ACID. [Concomitant]
     Active Substance: FOLIC ACID
     Dosage: UNK
  11. LYRICA [Concomitant]
     Active Substance: PREGABALIN
     Dosage: UNK
     Dates: end: 20190413
  12. SILDENAFIL. [Concomitant]
     Active Substance: SILDENAFIL
     Dosage: UNK
     Dates: end: 20190413
  13. VENLAFAXINE [Concomitant]
     Active Substance: VENLAFAXINE HYDROCHLORIDE
     Dosage: UNK
  14. TEMESTA [LORAZEPAM] [Suspect]
     Active Substance: LORAZEPAM
     Indication: ANXIETY
     Dosage: 0.5 MG, 2X/DAY
     Dates: start: 20190412, end: 20190413
  15. CANNABIS [Suspect]
     Active Substance: CANNABIS SATIVA SUBSP. INDICA TOP
     Dosage: 4 PUFFS
     Dates: start: 20190411

REACTIONS (7)
  - Accidental overdose [Unknown]
  - Product administration error [Unknown]
  - Encephalopathy [Unknown]
  - Mutism [Recovered/Resolved]
  - Confusional state [Recovered/Resolved]
  - Somnolence [Recovered/Resolved]
  - Altered state of consciousness [Recovered/Resolved]

NARRATIVE: CASE EVENT DATE: 20190410
